FAERS Safety Report 5176888-6 (Version None)
Quarter: 2006Q4

REPORT INFORMATION
  Report Type: 
  Country: None (occurrence: None)
  Receive Date: 20061218
  Receipt Date: 20061204
  Transmission Date: 20070319
  Serious: Yes (Hospitalization)
  Sender: FDA-Public Use
  Company Number: FR-JNJFOC-20061201664

PATIENT
  Sex: Female

DRUGS (16)
  1. CONTRAMAL [Suspect]
     Indication: HEADACHE
     Route: 048
     Dates: start: 20061115, end: 20061121
  2. CELLCEPT [Concomitant]
     Route: 065
  3. PROGRAF [Concomitant]
     Route: 065
  4. LOXEN [Concomitant]
     Route: 065
  5. SECTRAL [Concomitant]
     Route: 065
  6. LASIX [Concomitant]
     Route: 065
  7. URSOLVAN-200 [Concomitant]
     Route: 065
  8. PRAVASTATIN [Concomitant]
     Route: 065
  9. OMEPRAZOLE [Concomitant]
     Route: 065
  10. ARANESP [Concomitant]
     Route: 065
  11. ASPEGIC 1000 [Concomitant]
     Route: 065
  12. LANTUS [Concomitant]
     Route: 065
  13. NOVORAPID [Concomitant]
     Route: 065
  14. ZIDOVUDINE [Concomitant]
     Route: 065
  15. SUSTIVA [Concomitant]
     Route: 065
  16. CIPROFLOXACIN [Concomitant]
     Route: 065

REACTIONS (1)
  - NEUTROPENIA [None]
